FAERS Safety Report 18025930 (Version 7)
Quarter: 2023Q2

REPORT INFORMATION
  Report Type: Spontaneous
  Country: ES (occurrence: ES)
  Receive Date: 20200715
  Receipt Date: 20230612
  Transmission Date: 20230721
  Serious: Yes (Death, Hospitalization, Other)
  Sender: FDA-Public Use
  Company Number: ES-PFIZER INC-2020269742

PATIENT
  Age: 41 Year
  Sex: Male
  Weight: 84 kg

DRUGS (7)
  1. VENLAFAXINE [Interacting]
     Active Substance: VENLAFAXINE HYDROCHLORIDE
     Indication: Adjustment disorder with depressed mood
     Dosage: 150 MG, DAILY (150 MILLIGRAM, 1/DAY)
     Route: 065
     Dates: start: 201510
  2. ACETAMINOPHEN\TRAMADOL [Interacting]
     Active Substance: ACETAMINOPHEN\TRAMADOL
     Indication: Spinal osteoarthritis
     Dosage: 37.5 MG (SPORADICALLY FOR THE FIRST THREE YEARS)
     Route: 065
     Dates: start: 2011, end: 2014
  3. ACETAMINOPHEN\TRAMADOL [Interacting]
     Active Substance: ACETAMINOPHEN\TRAMADOL
     Dosage: 37.5 MG,(DURING PAST 2 YEARS 6 TO 12 TABLETS/DAY)
     Route: 065
     Dates: start: 2014, end: 2016
  4. ACETAMINOPHEN\TRAMADOL [Interacting]
     Active Substance: ACETAMINOPHEN\TRAMADOL
     Dosage: 12 DOSAGE FORM, QD (12 DOSAGE FORM, 1/DAY)
     Route: 065
  5. DIAZEPAM [Concomitant]
     Active Substance: DIAZEPAM
     Indication: Product used for unknown indication
     Dosage: 2 MILLIGRAM, 1/DAY (OCCASIONALLY, AT NIGHT)
     Route: 065
  6. ACETAMINOPHEN [Concomitant]
     Active Substance: ACETAMINOPHEN
     Indication: Product used for unknown indication
     Dosage: 325 MILLIGRAM
     Route: 065
  7. DICLOFENAC SODIUM [Concomitant]
     Active Substance: DICLOFENAC SODIUM
     Indication: Product used for unknown indication
     Dosage: UNK
     Route: 065

REACTIONS (23)
  - Accident at work [Fatal]
  - Fall [Fatal]
  - Craniocerebral injury [Fatal]
  - Pulmonary contusion [Fatal]
  - Cardiac arrest [Unknown]
  - Coma [Unknown]
  - Bradycardia [Unknown]
  - Hypotension [Unknown]
  - Mouth haemorrhage [Unknown]
  - Mydriasis [Unknown]
  - Sensory disturbance [Unknown]
  - Cognitive disorder [Unknown]
  - Drug dependence [Unknown]
  - Forearm fracture [Unknown]
  - Confusional state [Unknown]
  - Skull fractured base [Unknown]
  - Serotonin syndrome [Unknown]
  - Dizziness [Unknown]
  - Ear haemorrhage [Unknown]
  - Intentional overdose [Unknown]
  - Toxicity to various agents [Unknown]
  - Drug interaction [Unknown]
  - Treatment noncompliance [Unknown]
